FAERS Safety Report 5129370-6 (Version None)
Quarter: 2006Q4

REPORT INFORMATION
  Report Type: 
  Country: None (occurrence: None)
  Receive Date: 20061012
  Receipt Date: 20060929
  Transmission Date: 20070319
  Serious: Yes (Death, Life-Threatening, Other)
  Sender: FDA-Public Use
  Company Number: 2006098926

PATIENT
  Age: 76 Year
  Sex: Male
  Weight: 51.2 kg

DRUGS (9)
  1. ZYVOX [Suspect]
     Indication: PNEUMONIA STAPHYLOCOCCAL
     Dosage: 1200 MG (600 MG, 2 IN 1 D), INTRAVENOUS
     Route: 042
     Dates: start: 20060728, end: 20060802
  2. FULCALIQ (AMINO ACIDS NOS, ELECTROLYTES NOS, GLUCOSE, VITAMINS NOS) [Concomitant]
  3. INTRAFAT (GLYCEROL, PHOSPHOLIPIDS, SOYA OIL) [Concomitant]
  4. LASIX [Concomitant]
  5. HOKUNALIN (TULOBUTEROL HYDROCHLORIDE) [Concomitant]
  6. ELENTAL (MINERALS NOS, VITAMINS NOS) [Concomitant]
  7. SPIRIVA [Concomitant]
  8. MADOPAR (BENSERAZIDE HYDROCHLORIDE, LEVODOPA) [Concomitant]
  9. HUMULIN R [Concomitant]

REACTIONS (7)
  - ACUTE RESPIRATORY DISTRESS SYNDROME [None]
  - CONDITION AGGRAVATED [None]
  - DISSEMINATED INTRAVASCULAR COAGULATION [None]
  - GASTRIC HAEMORRHAGE [None]
  - PLATELET COUNT DECREASED [None]
  - PNEUMONIA [None]
  - STAPHYLOCOCCAL INFECTION [None]
